FAERS Safety Report 7270659-2 (Version None)
Quarter: 2011Q1

REPORT INFORMATION
  Report Type: 
  Country: None (occurrence: None)
  Receive Date: 20110202
  Receipt Date: 20110124
  Transmission Date: 20110831
  Serious: Yes (Hospitalization, Congenital Anomaly)
  Sender: FDA-Public Use
  Company Number: A0911066A

PATIENT
  Sex: Male

DRUGS (2)
  1. PAXIL [Suspect]
     Indication: DEPRESSION
     Route: 064
     Dates: start: 20011207
  2. MACROBID [Concomitant]
     Indication: URINARY TRACT INFECTION
     Route: 064

REACTIONS (4)
  - CONGENITAL ANOMALY [None]
  - ASTHMA [None]
  - DRUG EXPOSURE DURING PREGNANCY [None]
  - CARDIAC MURMUR [None]
